FAERS Safety Report 9995683 (Version 1)
Quarter: 2014Q1

REPORT INFORMATION
  Report Type: Spontaneous
  Country: US (occurrence: US)
  Receive Date: 20140311
  Receipt Date: 20140311
  Transmission Date: 20141002
  Serious: Yes (Other)
  Sender: FDA-Public Use
  Company Number: US-ASTRAZENECA-2014SE15506

PATIENT
  Age: 72 Year
  Sex: Male

DRUGS (2)
  1. BRILINTA [Suspect]
     Indication: ACUTE CORONARY SYNDROME
     Route: 048
     Dates: start: 20140228
  2. ASPRIN [Concomitant]
     Indication: CHEST PAIN
     Dates: start: 20140227

REACTIONS (2)
  - Dyspnoea [Unknown]
  - Incorrect dose administered [Unknown]
